FAERS Safety Report 7001037-9 (Version None)
Quarter: 2010Q3

REPORT INFORMATION
  Report Type: 
  Country: None (occurrence: None)
  Receive Date: 20100920
  Receipt Date: 20070522
  Transmission Date: 20110219
  Serious: Yes (Other)
  Sender: FDA-Public Use
  Company Number: IS-ASTRAZENECA-2007UW03660

PATIENT
  Age: 488 Month
  Sex: Female
  Weight: 90.3 kg

DRUGS (8)
  1. SEROQUEL [Suspect]
     Indication: NERVOUSNESS
     Route: 048
     Dates: start: 20060403
  2. SEROQUEL [Suspect]
     Route: 048
     Dates: start: 20060519
  3. UNIRETIC [Concomitant]
     Dates: start: 20060111
  4. UNIRETIC [Concomitant]
     Dates: start: 20060519
  5. DEXAMETHASONE [Concomitant]
     Dates: start: 20060124
  6. AVANDARYL [Concomitant]
     Route: 048
     Dates: start: 20060519
  7. METFORMIN [Concomitant]
     Dates: start: 20060531
  8. TAMOXIFEN CITRATE [Concomitant]
     Dates: start: 20060913

REACTIONS (2)
  - DIABETES MELLITUS [None]
  - DIABETES MELLITUS INADEQUATE CONTROL [None]
